FAERS Safety Report 17196279 (Version 2)
Quarter: 2020Q1

REPORT INFORMATION
  Report Type: Spontaneous
  Country: JP (occurrence: JP)
  Receive Date: 20191224
  Receipt Date: 20200207
  Transmission Date: 20200409
  Serious: Yes (Death, Hospitalization, Other)
  Sender: FDA-Public Use
  Company Number: JP-009507513-1911JPN002036J

PATIENT
  Age: 99 Year
  Sex: Male
  Weight: 57 kg

DRUGS (11)
  1. POLARAMINE [Concomitant]
     Active Substance: DEXCHLORPHENIRAMINE MALEATE
     Indication: INFECTION
     Dosage: 5 MILLIGRAM, QD
     Route: 041
     Dates: start: 20190927, end: 20191004
  2. QUETIAPINE. [Concomitant]
     Active Substance: QUETIAPINE
     Indication: SENILE DEMENTIA
     Dosage: 50 MILLIGRAM, QD
     Route: 048
     Dates: end: 20191203
  3. RISPERIDONE. [Concomitant]
     Active Substance: RISPERIDONE
     Indication: SENILE DEMENTIA
     Dosage: 1 MILLIGRAM, QD
     Route: 048
     Dates: end: 20191203
  4. SPIRONOLACTONE. [Concomitant]
     Active Substance: SPIRONOLACTONE
     Indication: CARDIAC FAILURE CHRONIC
     Dosage: 25 MILLIGRAM, QD
     Route: 048
     Dates: end: 20191203
  5. CUBICIN [Suspect]
     Active Substance: DAPTOMYCIN
     Indication: INFECTION
  6. MEMARY [Concomitant]
     Active Substance: MEMANTINE HYDROCHLORIDE
     Indication: SENILE DEMENTIA
     Dosage: 20 MILLIGRAM, QD
     Route: 048
     Dates: end: 20191203
  7. CUBICIN [Suspect]
     Active Substance: DAPTOMYCIN
     Indication: ENDOCARDITIS
     Dosage: 480 MILLIGRAM, QD
     Route: 041
     Dates: start: 20190927, end: 20191012
  8. FUROSEMIDE. [Concomitant]
     Active Substance: FUROSEMIDE
     Indication: CARDIAC FAILURE CHRONIC
     Dosage: 40 MILLIGRAM, QD
     Route: 048
     Dates: end: 20191203
  9. SEROQUEL [Concomitant]
     Active Substance: QUETIAPINE FUMARATE
     Indication: SENILE DEMENTIA
     Dosage: 25 MILLIGRAM, BID
     Route: 048
     Dates: end: 20191203
  10. SULBACILLIN [Concomitant]
     Active Substance: AMPICILLIN SODIUM\SULBACTAM SODIUM
     Indication: INFECTION
     Dosage: 3.0 GRAM, BID
     Route: 041
     Dates: start: 20190927, end: 20190927
  11. CUBICIN [Suspect]
     Active Substance: DAPTOMYCIN
     Indication: STAPHYLOCOCCAL BACTERAEMIA
     Dosage: 330 MILLIGRAM, QD
     Route: 041
     Dates: start: 20191107, end: 20191205

REACTIONS (5)
  - Staphylococcal bacteraemia [Recovered/Resolved]
  - Pneumonia aspiration [Fatal]
  - Blood creatine phosphokinase increased [Recovered/Resolved]
  - Overdose [Unknown]
  - Blood creatine phosphokinase increased [Recovered/Resolved]

NARRATIVE: CASE EVENT DATE: 20190927
